FAERS Safety Report 6045541-9 (Version None)
Quarter: 2009Q1

REPORT INFORMATION
  Report Type: 
  Country: None (occurrence: None)
  Receive Date: 20090121
  Receipt Date: 20090116
  Transmission Date: 20090719
  Serious: Yes (Life-Threatening, Hospitalization)
  Sender: FDA-Public Use
  Company Number: B0554557A

PATIENT
  Age: 72 Year
  Sex: Female

DRUGS (6)
  1. CLAMOXYL [Suspect]
     Indication: DRUG USE FOR UNKNOWN INDICATION
     Dosage: 1G TWICE PER DAY
     Route: 048
     Dates: start: 20081115, end: 20081119
  2. PREVISCAN [Suspect]
     Indication: DRUG USE FOR UNKNOWN INDICATION
     Dosage: 20MG PER DAY
     Route: 048
     Dates: end: 20081119
  3. SERETIDE [Concomitant]
  4. FLECAINE [Concomitant]
  5. STILNOX [Concomitant]
  6. LEVOTHYROX [Concomitant]

REACTIONS (10)
  - ABDOMINAL PAIN UPPER [None]
  - ANAEMIA [None]
  - CHEST PAIN [None]
  - DRUG INTERACTION [None]
  - DYSPNOEA [None]
  - HAEMOTHORAX [None]
  - INTERNATIONAL NORMALISED RATIO INCREASED [None]
  - MEDIASTINAL HAEMORRHAGE [None]
  - OESOPHAGEAL HAEMORRHAGE [None]
  - SHOCK HAEMORRHAGIC [None]
